FAERS Safety Report 16301259 (Version 1)
Quarter: 2019Q2

REPORT INFORMATION
  Report Type: Spontaneous
  Country: GR (occurrence: GR)
  Receive Date: 20190510
  Receipt Date: 20190510
  Transmission Date: 20190711
  Serious: Yes (Hospitalization)
  Sender: FDA-Public Use
  Company Number: GR-JNJFOC-20190502990

PATIENT
  Age: 41 Year
  Sex: Male

DRUGS (1)
  1. INFLIXIMAB, RECOMBINANT [Suspect]
     Active Substance: INFLIXIMAB
     Indication: BEHCET^S SYNDROME
     Route: 042

REACTIONS (5)
  - Off label use [Unknown]
  - Condition aggravated [Recovering/Resolving]
  - Behcet^s syndrome [Recovering/Resolving]
  - Pleural effusion [Recovering/Resolving]
  - Product use in unapproved indication [Unknown]
